FAERS Safety Report 7439117-6 (Version None)
Quarter: 2011Q2

REPORT INFORMATION
  Report Type: 
  Country: None (occurrence: None)
  Receive Date: 20110427
  Receipt Date: 20110414
  Transmission Date: 20111010
  Serious: No
  Sender: FDA-Public Use
  Company Number: NZ-JNJFOC-20110301964

PATIENT
  Sex: Male

DRUGS (1)
  1. RISPERDAL CONSTA [Suspect]
     Indication: PRODUCT USED FOR UNKNOWN INDICATION
     Route: 030

REACTIONS (3)
  - INCORRECT DOSE ADMINISTERED [None]
  - DEVICE OCCLUSION [None]
  - BLISTER [None]
